FAERS Safety Report 12521756 (Version 1)
Quarter: 2016Q3

REPORT INFORMATION
  Report Type: Report from Study
  Country: US (occurrence: US)
  Receive Date: 20160701
  Receipt Date: 20160701
  Transmission Date: 20161109
  Serious: Yes (Hospitalization)
  Sender: FDA-Public Use
  Company Number: US-VERTEX PHARMACEUTICALS-2016-003495

PATIENT
  Sex: Male
  Weight: 65 kg

DRUGS (34)
  1. PULMOZYME [Concomitant]
     Active Substance: DORNASE ALFA
     Dosage: 1 MG/ML, BID
     Route: 055
  2. LISINOPRIL. [Concomitant]
     Active Substance: LISINOPRIL
     Dosage: 1 DF, QD
     Route: 048
  3. NOVOLOG [Concomitant]
     Active Substance: INSULIN ASPART
     Dosage: TAKE SQ 1 UNIT PER 15 CARBS PRIOR TO MEALS
  4. CALCIFEROL [Concomitant]
     Active Substance: ERGOCALCIFEROL
  5. METRONIDAZOLE. [Concomitant]
     Active Substance: METRONIDAZOLE
  6. CREON [Concomitant]
     Active Substance: PANCRELIPASE AMYLASE\PANCRELIPASE LIPASE\PANCRELIPASE PROTEASE
     Dosage: 6 CAPSULES WITH MEALS AND 4 WITH SNACKS
  7. PERCOCET [Concomitant]
     Active Substance: ACETAMINOPHEN\OXYCODONE HYDROCHLORIDE
     Indication: PAIN
     Dosage: 1 DF, EVERY 4-6 HOURS, PRN
  8. ALBUTEROL. [Concomitant]
     Active Substance: ALBUTEROL
  9. ORKAMBI [Suspect]
     Active Substance: IVACAFTOR\LUMACAFTOR
     Indication: CYSTIC FIBROSIS
     Dosage: UNK
     Route: 048
     Dates: start: 20160316
  10. GABAPENTIN. [Concomitant]
     Active Substance: GABAPENTIN
     Dosage: 1 DF, TID
  11. CALCIUM ACETATE. [Concomitant]
     Active Substance: CALCIUM ACETATE
     Dosage: 2 DF, BEFORE MEAL
     Route: 048
  12. INSULIN [Concomitant]
     Active Substance: INSULIN NOS
  13. AMBIEN [Concomitant]
     Active Substance: ZOLPIDEM TARTRATE
  14. OXYMETAZOLINE HYDROCHLORIDE. [Concomitant]
     Active Substance: OXYMETAZOLINE HYDROCHLORIDE
  15. DORNASE ALFA [Concomitant]
     Active Substance: DORNASE ALFA
  16. TOBI [Concomitant]
     Active Substance: TOBRAMYCIN
     Dosage: 4 DF, BID, IN RECURRING CYCLES OF 28 DAYS ON AND 28 OFF
  17. ALBUTEROL SULFATE. [Concomitant]
     Active Substance: ALBUTEROL SULFATE
     Indication: WHEEZING
  18. HYPERTONIC SALINE SOLUTION [Concomitant]
     Active Substance: SODIUM CHLORIDE
  19. NEURONTIN [Concomitant]
     Active Substance: GABAPENTIN
  20. AQUADEKS [Concomitant]
     Active Substance: MINERALS\VITAMINS
  21. TRAZODONE HYDROCHLORIDE. [Concomitant]
     Active Substance: TRAZODONE HYDROCHLORIDE
     Dosage: 1 DF, QHS
     Route: 048
  22. MARINOL [Concomitant]
     Active Substance: DRONABINOL
     Dosage: 1 DF, BID
     Route: 048
  23. ALBUTEROL SULFATE. [Concomitant]
     Active Substance: ALBUTEROL SULFATE
     Indication: COUGH
     Dosage: 1-2 VIALS EVERY 4 HOURS, PRN
     Route: 055
  24. NEXIUM [Concomitant]
     Active Substance: ESOMEPRAZOLE MAGNESIUM
     Indication: GASTROOESOPHAGEAL REFLUX DISEASE
     Dosage: 1 DF, QD
  25. HYDROCHLOROTHIAZIDE. [Concomitant]
     Active Substance: HYDROCHLOROTHIAZIDE
     Dosage: 1 DF, QD
  26. SODIUM CHLORIDE. [Concomitant]
     Active Substance: SODIUM CHLORIDE
     Dosage: ONE VIAL, BID
     Route: 055
  27. DORNASE [Concomitant]
     Dosage: UNK, BID
  28. NEBS [Concomitant]
  29. FLONASE [Concomitant]
     Active Substance: FLUTICASONE PROPIONATE
     Indication: HYPERSENSITIVITY
     Dosage: 1 SPRAY EACH NOSTRIL, QD
  30. URSODIOL. [Concomitant]
     Active Substance: URSODIOL
     Dosage: 1 DF, BID
  31. MIRAPEX [Concomitant]
     Active Substance: PRAMIPEXOLE DIHYDROCHLORIDE
     Dosage: 1 DF, QHS
     Route: 048
  32. SINGULAIR [Concomitant]
     Active Substance: MONTELUKAST SODIUM
     Dosage: 1 DF, QD
     Route: 048
  33. VALACYCLOVIR HCL [Concomitant]
     Active Substance: VALACYCLOVIR HYDROCHLORIDE
     Dosage: 1 DF, BID, FOR 5-10 DAYS
  34. OXYCODONE [Concomitant]
     Active Substance: OXYCODONE

REACTIONS (5)
  - Chromaturia [Unknown]
  - Abdominal pain [Unknown]
  - Influenza like illness [Not Recovered/Not Resolved]
  - Infective pulmonary exacerbation of cystic fibrosis [Recovering/Resolving]
  - Pyrexia [Not Recovered/Not Resolved]

NARRATIVE: CASE EVENT DATE: 2016
